FAERS Safety Report 20938501 (Version 1)
Quarter: 2022Q2

REPORT INFORMATION
  Report Type: Spontaneous
  Country: US (occurrence: US)
  Receive Date: 20220609
  Receipt Date: 20220609
  Transmission Date: 20220721
  Serious: Yes (Other)
  Sender: FDA-Public Use
  Company Number: US-PFIZER INC-202200788061

PATIENT
  Age: 57 Year
  Sex: Male

DRUGS (13)
  1. ZOLEDRONIC ACID [Suspect]
     Active Substance: ZOLEDRONIC ACID
     Indication: Plasma cell myeloma
     Dosage: 4 MG, MONTHLY
     Route: 042
     Dates: start: 2002
  2. ZOLEDRONIC ACID [Suspect]
     Active Substance: ZOLEDRONIC ACID
     Indication: Osteolysis
  3. METHYLPREDNISOLONE [Concomitant]
     Active Substance: METHYLPREDNISOLONE
     Indication: Plasma cell myeloma
     Dosage: UNK
     Route: 048
     Dates: start: 200505
  4. METHYLPREDNISOLONE [Concomitant]
     Active Substance: METHYLPREDNISOLONE
     Indication: Osteolysis
  5. PREDNISONE [Concomitant]
     Active Substance: PREDNISONE
     Indication: Plasma cell myeloma
     Dosage: 50 MG, ALTERNATE DAY
     Route: 048
     Dates: start: 200003
  6. PREDNISONE [Concomitant]
     Active Substance: PREDNISONE
     Indication: Osteolysis
  7. CLARITHROMYCIN [Concomitant]
     Active Substance: CLARITHROMYCIN
     Indication: Plasma cell myeloma
     Dosage: UNK
     Dates: start: 200709
  8. CLARITHROMYCIN [Concomitant]
     Active Substance: CLARITHROMYCIN
     Indication: Osteolysis
  9. THALIDOMIDE [Concomitant]
     Active Substance: THALIDOMIDE
     Indication: Plasma cell myeloma
     Dosage: UNK
     Dates: start: 200306
  10. THALIDOMIDE [Concomitant]
     Active Substance: THALIDOMIDE
     Indication: Osteolysis
  11. VINCRISTINE [Concomitant]
     Active Substance: VINCRISTINE
     Indication: Plasma cell myeloma
     Dosage: 5 CYCLES
     Route: 042
     Dates: start: 200003
  12. DOXORUBICIN [Concomitant]
     Active Substance: DOXORUBICIN
     Indication: Plasma cell myeloma
     Dosage: UNK
     Dates: start: 200003
  13. DEXAMETHASONE [Concomitant]
     Active Substance: DEXAMETHASONE
     Indication: Plasma cell myeloma
     Dosage: UNK

REACTIONS (1)
  - Stress fracture [Recovering/Resolving]
